FAERS Safety Report 5820167-8 (Version None)
Quarter: 2008Q3

REPORT INFORMATION
  Report Type: 
  Country: None (occurrence: None)
  Receive Date: 20080724
  Receipt Date: 20080715
  Transmission Date: 20090109
  Serious: Yes (Hospitalization, Other)
  Sender: FDA-Public Use
  Company Number: PHHY2008BR14322

PATIENT
  Age: 79 Year
  Sex: Female

DRUGS (3)
  1. EXELON [Suspect]
     Indication: DEMENTIA ALZHEIMER'S TYPE
     Dosage: 1.5 MG, 2 CAPSULES DAILY
     Route: 048
  2. EXELON [Suspect]
     Dosage: 3 MG, 3 CAPSULES DAILY
     Route: 048
  3. EXELON [Suspect]
     Dosage: 1.5 MG, 2 CAPSULES DAILY
     Route: 048

REACTIONS (12)
  - CEREBROVASCULAR ACCIDENT [None]
  - DIZZINESS [None]
  - FALL [None]
  - HEAD INJURY [None]
  - HEADACHE [None]
  - HEMIPLEGIA [None]
  - HYPERTENSION [None]
  - MECHANICAL VENTILATION [None]
  - NAUSEA [None]
  - PULMONARY EMBOLISM [None]
  - SURGERY [None]
  - VOMITING [None]
